FAERS Safety Report 16575141 (Version 2)
Quarter: 2020Q1

REPORT INFORMATION
  Report Type: Spontaneous
  Country: FR (occurrence: FR)
  Receive Date: 20190715
  Receipt Date: 20200311
  Transmission Date: 20200409
  Serious: Yes (Hospitalization)
  Sender: FDA-Public Use
  Company Number: PHHY2019FR159639

PATIENT
  Age: 48 Year
  Sex: Male
  Weight: 84 kg

DRUGS (5)
  1. OPDIVO [Concomitant]
     Active Substance: NIVOLUMAB
     Indication: CLEAR CELL RENAL CELL CARCINOMA
     Dosage: 1 DF, CYCLIC
     Route: 041
     Dates: start: 20180823, end: 20190124
  2. VOTRIENT [Suspect]
     Active Substance: PAZOPANIB HYDROCHLORIDE
     Indication: CLEAR CELL RENAL CELL CARCINOMA
     Dosage: UNK
     Route: 048
     Dates: start: 20190510, end: 20190522
  3. YERVOY [Concomitant]
     Active Substance: IPILIMUMAB
     Indication: CLEAR CELL RENAL CELL CARCINOMA
     Dosage: 1 DF, CYCLIC
     Route: 041
     Dates: start: 20180823
  4. ALPRAZOLAM. [Concomitant]
     Active Substance: ALPRAZOLAM
     Indication: PRODUCT USED FOR UNKNOWN INDICATION
     Dosage: 0.25 MG, PRN
     Route: 048
  5. SYMBICORT [Concomitant]
     Active Substance: BUDESONIDE\FORMOTEROL FUMARATE DIHYDRATE
     Indication: PRODUCT USED FOR UNKNOWN INDICATION
     Dosage: UNK
     Route: 055

REACTIONS (2)
  - Haemophagocytic lymphohistiocytosis [Recovering/Resolving]
  - Drug reaction with eosinophilia and systemic symptoms [Recovering/Resolving]

NARRATIVE: CASE EVENT DATE: 20190521
